FAERS Safety Report 9801816 (Version 4)
Quarter: 2014Q1

REPORT INFORMATION
  Report Type: Spontaneous
  Country: US (occurrence: US)
  Receive Date: 20140107
  Receipt Date: 20140225
  Transmission Date: 20141002
  Serious: Yes (Hospitalization)
  Sender: FDA-Public Use
  Company Number: US-GILEAD-2014-0091143

PATIENT
  Age: 60 Year
  Sex: Female

DRUGS (11)
  1. LETAIRIS [Suspect]
     Indication: PULMONARY ARTERIAL HYPERTENSION
     Dosage: 10 MG, QD
     Route: 048
     Dates: start: 20090309
  2. LETAIRIS [Suspect]
     Indication: SARCOIDOSIS
  3. ALDACTONE                          /00006201/ [Concomitant]
  4. ALBUTEROL                          /00139501/ [Concomitant]
  5. FLONASE                            /00908302/ [Concomitant]
  6. LASIX                              /00032601/ [Concomitant]
  7. ADVAIR [Concomitant]
  8. SPIRIVA [Concomitant]
  9. LEXAPRO [Concomitant]
  10. DIGOXIN [Concomitant]
  11. REVATIO [Concomitant]

REACTIONS (4)
  - Bronchitis [Recovered/Resolved]
  - Oxygen saturation decreased [Recovered/Resolved]
  - Dyspnoea [Recovered/Resolved]
  - Fatigue [Recovered/Resolved]
